FAERS Safety Report 6781483-9 (Version None)
Quarter: 2010Q2

REPORT INFORMATION
  Report Type: 
  Country: None (occurrence: None)
  Receive Date: 20100621
  Receipt Date: 20100615
  Transmission Date: 20101027
  Serious: Yes (Death)
  Sender: FDA-Public Use
  Company Number: DE-CELGENEUS-062-50794-10061619

PATIENT
  Age: 72 Year
  Sex: Male

DRUGS (5)
  1. VIDAZA [Suspect]
     Route: 058
     Dates: start: 20091201
  2. VIDAZA [Suspect]
     Dosage: DOSE REDUCED
     Route: 058
     Dates: end: 20100501
  3. RED BLOOD CELLS [Concomitant]
     Indication: DRUG USE FOR UNKNOWN INDICATION
     Route: 051
  4. PLATELETS [Concomitant]
     Indication: DRUG USE FOR UNKNOWN INDICATION
     Route: 051
  5. DEFERASIROX [Concomitant]
     Indication: IRON OVERLOAD
     Route: 065

REACTIONS (1)
  - DEATH [None]
